FAERS Safety Report 4318742-5 (Version None)
Quarter: 2004Q1

REPORT INFORMATION
  Report Type: 
  Country: None (occurrence: None)
  Receive Date: 20040315
  Receipt Date: 20040302
  Transmission Date: 20041129
  Serious: Yes (Hospitalization, Other)
  Sender: FDA-Public Use
  Company Number: US-JNJFOC-20031002780

PATIENT
  Age: 57 Year
  Sex: Male
  Weight: 86.1834 kg

DRUGS (10)
  1. REMICADE [Suspect]
     Indication: CROHN'S DISEASE
     Dosage: 1 IN 1 DAY, INTRAVENOUS
     Route: 042
     Dates: start: 20000719
  2. CELEBREX [Suspect]
     Indication: DRUG USE FOR UNKNOWN INDICATION
  3. NEXIUM [Concomitant]
  4. FOLIC ACID [Concomitant]
  5. QUESTRAN [Concomitant]
  6. HYDROCHLOROTHIAZIDE [Concomitant]
  7. ZOCOR [Concomitant]
  8. TYLENOL [Concomitant]
  9. IMMODIUM (LOPERAMIDE HYDROCHLORIDE) [Concomitant]
  10. PREDNISONE [Concomitant]

REACTIONS (34)
  - ANAEMIA [None]
  - ARTHRALGIA [None]
  - ARTHRITIS BACTERIAL [None]
  - BONE EROSION [None]
  - BURNING SENSATION [None]
  - CHILLS [None]
  - COLONIC POLYP [None]
  - DERMATITIS [None]
  - DYSPNOEA [None]
  - ERYTHEMA NODOSUM [None]
  - FATIGUE [None]
  - FIBROSIS [None]
  - FUNGAL INFECTION [None]
  - GRANULOMA [None]
  - HAEMARTHROSIS [None]
  - HAEMORRHOIDS [None]
  - HYPERTENSION [None]
  - INFLAMMATION [None]
  - LOCALISED OSTEOARTHRITIS [None]
  - MASS [None]
  - MYCOBACTERIAL INFECTION [None]
  - NECROSIS [None]
  - OESOPHAGEAL ULCER [None]
  - OSTEOMYELITIS [None]
  - PYREXIA [None]
  - RECTAL ULCER [None]
  - RENAL FAILURE [None]
  - SCOLIOSIS [None]
  - SEROMA [None]
  - SPONDYLOARTHROPATHY [None]
  - STITCH ABSCESS [None]
  - STREPTOCOCCAL SEPSIS [None]
  - TUBERCULOSIS [None]
  - WEIGHT DECREASED [None]
